FAERS Safety Report 10640648 (Version 1)
Quarter: 2014Q4

REPORT INFORMATION
  Report Type: Spontaneous
  Country: US (occurrence: None)
  Receive Date: 20141208
  Receipt Date: 20141208
  Transmission Date: 20150529
  Serious: Yes (Other)
  Sender: FDA-Public Use
  Company Number: None

PATIENT
  Age: 33 Year
  Sex: Female

DRUGS (1)
  1. CYCLOBENZAPRINE [Suspect]
     Active Substance: CYCLOBENZAPRINE
     Indication: LIGAMENT SPRAIN
     Dosage: 1 PILL
     Route: 048
     Dates: start: 20141126, end: 20141129

REACTIONS (2)
  - Confusional state [None]
  - Disturbance in attention [None]

NARRATIVE: CASE EVENT DATE: 20141128
